FAERS Safety Report 16648886 (Version 4)
Quarter: 2019Q3

REPORT INFORMATION
  Report Type: Report from Study
  Country: AU (occurrence: AU)
  Receive Date: 20190730
  Receipt Date: 20190830
  Transmission Date: 20191004
  Serious: Yes (Hospitalization, Other)
  Sender: FDA-Public Use
  Company Number: PHHY2019AU100417

PATIENT
  Age: 3 Year
  Sex: Female
  Weight: 14.8 kg

DRUGS (24)
  1. LACTULOSE. [Concomitant]
     Active Substance: LACTULOSE
     Indication: CONSTIPATION
     Dosage: 5 ML, PRN
     Route: 065
     Dates: start: 20190302
  2. PANADOL [Concomitant]
     Active Substance: ACETAMINOPHEN
     Indication: PAIN
     Dosage: 195 MG, PRN
     Route: 065
     Dates: start: 20190305
  3. VENETOCLAX. [Suspect]
     Active Substance: VENETOCLAX
     Dosage: 120 MG, QD (1 IN 1 D) (250 MG/M2)
     Route: 065
     Dates: start: 20190625
  4. SODIUM CHLORIDE + DEXTROSE [Concomitant]
     Indication: TUMOUR LYSIS SYNDROME
     Dosage: UNK
     Route: 042
     Dates: start: 20190326, end: 20190401
  5. SODIUM CHLORIDE + DEXTROSE [Concomitant]
     Indication: PROPHYLAXIS
  6. HYCAMTIN [Suspect]
     Active Substance: TOPOTECAN HYDROCHLORIDE
     Indication: REFRACTORY CANCER
     Dosage: 0.75 MG/M2, UNK
     Route: 042
     Dates: start: 20190328, end: 20190428
  7. PENTAMIDINE [Concomitant]
     Active Substance: PENTAMIDINE
     Indication: PROPHYLAXIS
     Dosage: 60 MG, QMO
     Route: 042
     Dates: start: 20190416
  8. CYCLOPHOSPHAMIDE. [Suspect]
     Active Substance: CYCLOPHOSPHAMIDE
     Dosage: 125 MG/M2, UNK
     Route: 042
     Dates: start: 20190515, end: 20190519
  9. OXYCODONE [Concomitant]
     Active Substance: OXYCODONE
     Indication: PAIN
     Dosage: 1.5 MG, PRN
     Route: 065
     Dates: start: 20190305
  10. HYCAMTIN [Suspect]
     Active Substance: TOPOTECAN HYDROCHLORIDE
     Dosage: 0.38 MG/M2, UNK
     Route: 042
     Dates: start: 20190625
  11. CYCLOPHOSPHAMIDE. [Suspect]
     Active Substance: CYCLOPHOSPHAMIDE
     Dosage: 187.5 MG/M2, UNK
     Route: 042
     Dates: start: 20190604, end: 20190608
  12. VENETOCLAX. [Suspect]
     Active Substance: VENETOCLAX
     Dosage: 120 MG, QD (1 IN 1 D) (250 MG/M2)
     Route: 065
     Dates: start: 20190604, end: 20190612
  13. ONDANSETRON [Concomitant]
     Active Substance: ONDANSETRON
     Indication: VOMITING
     Dosage: 12 MG, TID
     Route: 048
     Dates: start: 20190610
  14. HYCAMTIN [Suspect]
     Active Substance: TOPOTECAN HYDROCHLORIDE
     Dosage: 0.375 MG/M2, UNK
     Route: 042
     Dates: start: 20190515, end: 20190519
  15. HYCAMTIN [Suspect]
     Active Substance: TOPOTECAN HYDROCHLORIDE
     Dosage: 0.563 MG/M2, UNK
     Route: 042
     Dates: start: 20190604, end: 20190608
  16. CYCLOPHOSPHAMIDE. [Suspect]
     Active Substance: CYCLOPHOSPHAMIDE
     Indication: REFRACTORY CANCER
     Dosage: 250 MG/M2, UNK
     Route: 042
     Dates: start: 20190328, end: 20190428
  17. CYCLOPHOSPHAMIDE. [Suspect]
     Active Substance: CYCLOPHOSPHAMIDE
     Dosage: 125 MG/M2, UNK
     Route: 042
     Dates: start: 20190625
  18. VENETOCLAX. [Suspect]
     Active Substance: VENETOCLAX
     Dosage: 120 MG, QD (1 IN 1) (250 MG/M2)
     Route: 065
     Dates: start: 20190327, end: 20190408
  19. VENETOCLAX. [Suspect]
     Active Substance: VENETOCLAX
     Dosage: 120 MG, QD (1 IN 1 D) (250 MG/M2)
     Route: 065
     Dates: start: 20190515, end: 20190524
  20. VENETOCLAX. [Suspect]
     Active Substance: VENETOCLAX
     Indication: REFRACTORY CANCER
     Dosage: 60 MG, QD
     Route: 065
     Dates: start: 20190326, end: 20190326
  21. BACTRIM [Concomitant]
     Active Substance: SULFAMETHOXAZOLE\TRIMETHOPRIM
     Indication: ANTIBIOTIC PROPHYLAXIS
     Dosage: 34 MG, BID (MON, WED, FRI)
     Route: 065
     Dates: start: 20180710
  22. OLIVE OIL [Concomitant]
     Active Substance: OLIVE OIL
     Indication: PRODUCT USED FOR UNKNOWN INDICATION
     Dosage: UNK
     Route: 061
     Dates: start: 20190328
  23. VENETOCLAX. [Suspect]
     Active Substance: VENETOCLAX
     Dosage: 120 MG, QD (1 IN 1) (250 MG/M2)
     Route: 065
     Dates: start: 20190424, end: 20190501
  24. ONDANSETRON [Concomitant]
     Active Substance: ONDANSETRON
     Indication: NAUSEA
     Dosage: 3 MG, PRN
     Route: 065
     Dates: start: 20190327

REACTIONS (19)
  - Constipation [Unknown]
  - Diarrhoea [Recovering/Resolving]
  - Abdominal pain [Recovering/Resolving]
  - Febrile neutropenia [Recovered/Resolved]
  - Febrile neutropenia [Recovered/Resolved]
  - Vomiting [Recovering/Resolving]
  - Febrile neutropenia [Recovered/Resolved]
  - Gastroenteritis norovirus [Recovered/Resolved]
  - Amylase decreased [Unknown]
  - Rhinorrhoea [Unknown]
  - Pallor [Recovering/Resolving]
  - Lipase decreased [Unknown]
  - White blood cell count decreased [Recovering/Resolving]
  - Platelet count decreased [Recovering/Resolving]
  - Product use in unapproved indication [Unknown]
  - Pyrexia [Recovered/Resolved]
  - Clostridium test positive [Unknown]
  - Mucosal dryness [Recovering/Resolving]
  - Anaemia [Unknown]

NARRATIVE: CASE EVENT DATE: 20190306
